APPROVED DRUG PRODUCT: DEFLAZACORT
Active Ingredient: DEFLAZACORT
Strength: 36MG
Dosage Form/Route: TABLET;ORAL
Application: A217123 | Product #004 | TE Code: AB
Applicant: AUROBINDO PHARMA LTD
Approved: Feb 9, 2024 | RLD: No | RS: No | Type: RX